FAERS Safety Report 5874648-1 (Version None)
Quarter: 2008Q3

REPORT INFORMATION
  Report Type: 
  Country: None (occurrence: None)
  Receive Date: 20080909
  Receipt Date: 20080902
  Transmission Date: 20090109
  Serious: Yes (Life-Threatening, Disabling, Other)
  Sender: FDA-Public Use
  Company Number: DE-TEVA-176829ISR

PATIENT
  Sex: Male

DRUGS (3)
  1. FLUOROURACIL [Suspect]
     Indication: CHEMOTHERAPY
     Dates: start: 20080616, end: 20080618
  2. OXALIPLATIN [Concomitant]
     Indication: CHEMOTHERAPY
     Route: 042
     Dates: start: 20080616
  3. CALCIUM FOLINATE [Concomitant]
     Indication: CHEMOTHERAPY
     Route: 042
     Dates: start: 20080616

REACTIONS (1)
  - ACUTE CORONARY SYNDROME [None]
